FAERS Safety Report 19263915 (Version 6)
Quarter: 2021Q3

REPORT INFORMATION
  Report Type: Spontaneous
  Country: CH (occurrence: CH)
  Receive Date: 20210517
  Receipt Date: 20210819
  Transmission Date: 20211014
  Serious: Yes (Hospitalization, Other)
  Sender: FDA-Public Use
  Company Number: NVSC2021CH107360

PATIENT
  Age: 82 Year
  Sex: Female

DRUGS (2)
  1. CALCIMAGON [Concomitant]
     Active Substance: CALCIUM
     Indication: PRODUCT USED FOR UNKNOWN INDICATION
     Dosage: UNK, QD (IN THE MORNING) 1?0?0?0
     Route: 048
  2. ACLASTA [Suspect]
     Active Substance: ZOLEDRONIC ACID
     Indication: OSTEOPOROSIS
     Dosage: 5MG/100ML, Q12MO
     Route: 041
     Dates: start: 20210308

REACTIONS (18)
  - Arthralgia [Recovered/Resolved]
  - Traumatic shock [Recovered/Resolved]
  - Haematoma muscle [Recovering/Resolving]
  - Blood test abnormal [Recovered/Resolved]
  - Haemorrhage [Recovering/Resolving]
  - Arthralgia [Not Recovered/Not Resolved]
  - Deep vein thrombosis [Recovering/Resolving]
  - Gait disturbance [Recovering/Resolving]
  - Muscle rupture [Recovered/Resolved]
  - Traumatic shock [Recovered/Resolved]
  - Peripheral swelling [Recovering/Resolving]
  - Synovial rupture [Recovered/Resolved]
  - Urinary tract infection [Recovered/Resolved]
  - Discomfort [Recovered/Resolved]
  - Haemarthrosis [Recovered/Resolved]
  - Thrombosis [Recovering/Resolving]
  - Thrombosis [Recovered/Resolved]
  - Urinary tract infection [Recovered/Resolved]

NARRATIVE: CASE EVENT DATE: 20210308
